FAERS Safety Report 20413017 (Version 1)
Quarter: 2022Q1

REPORT INFORMATION
  Report Type: Report from Study
  Country: US (occurrence: US)
  Receive Date: 20220201
  Receipt Date: 20220201
  Transmission Date: 20220423
  Serious: Yes (Other)
  Sender: FDA-Public Use
  Company Number: US-ABBVIE-22K-163-4257627-00

PATIENT
  Age: 52 Year
  Sex: Female

DRUGS (3)
  1. RINVOQ [Suspect]
     Active Substance: UPADACITINIB
     Indication: Rheumatoid arthritis
     Route: 048
  2. MORPHINE [Suspect]
     Active Substance: MORPHINE
     Indication: Product used for unknown indication
     Route: 065
  3. MODERNA COVID-19 VACCINE [Concomitant]
     Active Substance: ELASOMERAN
     Indication: COVID-19 immunisation
     Route: 030

REACTIONS (6)
  - Intervertebral disc degeneration [Not Recovered/Not Resolved]
  - Infection [Recovered/Resolved]
  - Arthralgia [Recovering/Resolving]
  - Pyrexia [Recovered/Resolved]
  - Drug hypersensitivity [Not Recovered/Not Resolved]
  - Joint stiffness [Recovering/Resolving]

NARRATIVE: CASE EVENT DATE: 20220101
